FAERS Safety Report 9412358 (Version 1)
Quarter: 2013Q3

REPORT INFORMATION
  Report Type: Spontaneous
  Country: US (occurrence: US)
  Receive Date: 20130722
  Receipt Date: 20130722
  Transmission Date: 20140515
  Serious: Yes (Other)
  Sender: FDA-Public Use
  Company Number: US-PFIZER INC-2013210490

PATIENT
  Age: 60 Year
  Sex: Male
  Weight: 79.37 kg

DRUGS (3)
  1. CELEBREX [Suspect]
     Indication: OSTEOARTHRITIS
     Dosage: 200 MG, 1X/DAY
     Dates: end: 201307
  2. ASPRIN [Suspect]
     Dosage: UNK
  3. CLARITIN [Concomitant]
     Indication: HYPERSENSITIVITY
     Dosage: 10 MG, 1X/DAY

REACTIONS (3)
  - Pulmonary fibrosis [Unknown]
  - Anaphylactic reaction [Unknown]
  - Drug prescribing error [Unknown]
